FAERS Safety Report 24269315 (Version 3)
Quarter: 2024Q4

REPORT INFORMATION
  Report Type: Spontaneous
  Country: JP (occurrence: JP)
  Receive Date: 20240830
  Receipt Date: 20241230
  Transmission Date: 20250115
  Serious: Yes (Hospitalization, Other)
  Sender: ROCHE
  Company Number: JP-CHUGAI-2024029297

PATIENT
  Age: 8 Decade
  Sex: Male

DRUGS (1)
  1. HEMLIBRA [Suspect]
     Active Substance: EMICIZUMAB-KXWH
     Indication: Haemophilia A without inhibitors
     Dosage: 150 MILLIGRAM, ONCE/2WEEKS
     Route: 050
     Dates: start: 20200821

REACTIONS (3)
  - Haemorrhage intracranial [Recovered/Resolved]
  - Gastric haemorrhage [Unknown]
  - Encephalitis [Unknown]

NARRATIVE: CASE EVENT DATE: 20221108
